FAERS Safety Report 12317748 (Version 2)
Quarter: 2016Q2

REPORT INFORMATION
  Report Type: Report from Study
  Country: US (occurrence: US)
  Receive Date: 20160429
  Receipt Date: 20160516
  Transmission Date: 20160815
  Serious: Yes (Death, Other)
  Sender: FDA-Public Use
  Company Number: US-AMGEN-USASL2016053338

PATIENT
  Age: 74 Year
  Sex: Male
  Weight: 68.27 kg

DRUGS (16)
  1. INFLUENZA VACCIN [Concomitant]
     Active Substance: INFLUENZA VIRUS VACCINE
     Route: 030
  2. ISOSORBIDE MONONITRATE. [Concomitant]
     Active Substance: ISOSORBIDE MONONITRATE
     Dosage: 30 MG, QD
     Route: 048
  3. SPIRIVA [Concomitant]
     Active Substance: TIOTROPIUM BROMIDE MONOHYDRATE
     Dosage: 18 MUG, QD
  4. SYMBICORT [Concomitant]
     Active Substance: BUDESONIDE\FORMOTEROL FUMARATE DIHYDRATE
     Dosage: 160-4.5 MCG, BID
  5. LISINOPRIL. [Concomitant]
     Active Substance: LISINOPRIL
     Dosage: 10 MG, BID
     Route: 048
  6. TYLENOL [Concomitant]
     Active Substance: ACETAMINOPHEN
     Dosage: 500 MG, QD
     Route: 048
  7. ARANESP [Suspect]
     Active Substance: DARBEPOETIN ALFA
     Indication: PRODUCT USED FOR UNKNOWN INDICATION
     Dosage: 40 MCG, QWK
     Route: 065
  8. JAKAFI [Concomitant]
     Active Substance: RUXOLITINIB
     Dosage: 5 MG, QD
     Route: 048
  9. FOLIC ACID. [Concomitant]
     Active Substance: FOLIC ACID
     Dosage: UNK UNK, QD
     Route: 048
  10. FENOFIBRATE. [Concomitant]
     Active Substance: FENOFIBRATE
     Dosage: 54 MG, QD
     Route: 048
  11. SPIRONOLACTONE. [Concomitant]
     Active Substance: SPIRONOLACTONE
     Dosage: 25 MG, QD
     Route: 048
  12. ZITHROMAX [Concomitant]
     Active Substance: AZITHROMYCIN DIHYDRATE
     Dosage: 250 MG, QD
     Route: 048
  13. RUXOLITINIB [Concomitant]
     Active Substance: RUXOLITINIB
     Dosage: 5 MG, BID
     Route: 048
  14. GABAPENTIN. [Concomitant]
     Active Substance: GABAPENTIN
     Dosage: 600 MG, BID
     Route: 048
  15. SIMVASTATIN. [Concomitant]
     Active Substance: SIMVASTATIN
     Dosage: UNK UNK, QD
     Route: 048
  16. TORSEMIDE. [Concomitant]
     Active Substance: TORSEMIDE
     Dosage: UNK UNK, BID
     Route: 048

REACTIONS (10)
  - Weight increased [Unknown]
  - Cough [Unknown]
  - Ecchymosis [Unknown]
  - Fall [Unknown]
  - Cardiac failure congestive [Fatal]
  - Splenomegaly [Unknown]
  - Oedema peripheral [Unknown]
  - Dyspnoea [Unknown]
  - Fatigue [Unknown]
  - Wheelchair user [Unknown]

NARRATIVE: CASE EVENT DATE: 201512
